FAERS Safety Report 4694347-1 (Version None)
Quarter: 2005Q2

REPORT INFORMATION
  Report Type: 
  Country: None (occurrence: None)
  Receive Date: 20050620
  Receipt Date: 20050525
  Transmission Date: 20051028
  Serious: Yes (Other)
  Sender: FDA-Public Use
  Company Number: PHEH2005US06023

PATIENT
  Age: 36 Year
  Sex: Female

DRUGS (5)
  1. ZELNORM [Suspect]
     Indication: IRRITABLE BOWEL SYNDROME
     Dosage: 6 MG, BID
     Route: 048
     Dates: start: 20050420, end: 20050516
  2. QUESTRAN [Concomitant]
     Indication: DIARRHOEA
  3. CLONAZEPAM [Concomitant]
     Indication: ANXIETY
     Dosage: 1 MG, TID
  4. SINGULAIR [Concomitant]
     Indication: ASTHMA
  5. ALBUTEROL [Concomitant]
     Indication: ASTHMA
     Dosage: UNK, PRN
     Dates: start: 20010101

REACTIONS (9)
  - ABDOMINAL PAIN [None]
  - COLITIS ISCHAEMIC [None]
  - COLONIC OBSTRUCTION [None]
  - COLONIC STENOSIS [None]
  - CONSTIPATION [None]
  - INFLAMMATION [None]
  - MUCOSAL EROSION [None]
  - MUCOSAL ULCERATION [None]
  - PELVIC PERITONEAL ADHESIONS [None]
